FAERS Safety Report 23931422 (Version 1)
Quarter: 2024Q2

REPORT INFORMATION
  Report Type: Spontaneous
  Country: ES (occurrence: ES)
  Receive Date: 20240603
  Receipt Date: 20240603
  Transmission Date: 20240716
  Serious: Yes (Life-Threatening, Hospitalization)
  Sender: FDA-Public Use
  Company Number: None

PATIENT
  Age: 31 Year
  Sex: Female

DRUGS (3)
  1. ESLICARBAZEPINE [Interacting]
     Active Substance: ESLICARBAZEPINE
     Indication: Suicide attempt
     Dosage: TIME INTERVAL: TOTAL: ESLICARBAZEPINA ACETATO (8312AC)
     Route: 048
     Dates: start: 20240420, end: 20240420
  2. PREGABALIN [Interacting]
     Active Substance: PREGABALIN
     Indication: Suicide attempt
     Dosage: TIME INTERVAL: TOTAL: PREGABALINA (3897A)
     Route: 048
     Dates: start: 20240420, end: 20240420
  3. DIAZEPAM [Interacting]
     Active Substance: DIAZEPAM
     Indication: Suicide attempt
     Dosage: TIME INTERVAL: TOTAL: DIAZEPAM(730A)
     Route: 048
     Dates: start: 20240420, end: 20240420

REACTIONS (1)
  - Coma [Recovered/Resolved]

NARRATIVE: CASE EVENT DATE: 20240421
